FAERS Safety Report 5288633-4 (Version None)
Quarter: 2007Q1

REPORT INFORMATION
  Report Type: 
  Country: None (occurrence: None)
  Receive Date: 20070330
  Receipt Date: 20070319
  Transmission Date: 20070707
  Serious: Yes (Other)
  Sender: FDA-Public Use
  Company Number: 15998

PATIENT
  Age: 47 Year
  Sex: Female

DRUGS (6)
  1. DOXORUBICIN HCL [Suspect]
     Indication: MULTIPLE MYELOMA
     Dates: start: 19980701
  2. VINCRISTINE [Suspect]
     Indication: MULTIPLE MYELOMA
     Dates: start: 19980701
  3. ADRIAMYCIN PFS [Suspect]
     Indication: MULTIPLE MYELOMA
     Dates: start: 19980701
  4. CYCLOSPORINE [Concomitant]
  5. MELFALAN [Concomitant]
  6. PAMIDRONIAN [Concomitant]

REACTIONS (3)
  - PULMONARY SARCOIDOSIS [None]
  - SARCOIDOSIS [None]
  - WEIGHT DECREASED [None]
